FAERS Safety Report 8485885-4 (Version None)
Quarter: 2012Q3

REPORT INFORMATION
  Report Type: 
  Country: None (occurrence: None)
  Receive Date: 20120703
  Receipt Date: 20120620
  Transmission Date: 20120928
  Serious: Yes (Hospitalization, Other)
  Sender: FDA-Public Use
  Company Number: JP-NAPPMUNDI-MAG-2012-0002210

PATIENT
  Age: 37 Year
  Sex: Female

DRUGS (3)
  1. BUPRENORPHINE [Suspect]
     Dosage: UNK
     Route: 062
     Dates: end: 20120430
  2. INDOMETHACIN [Concomitant]
     Route: 048
  3. BUPRENORPHINE [Suspect]
     Indication: PIRIFORMIS SYNDROME
     Dosage: 10 MCG, Q1H
     Route: 062
     Dates: start: 20120501, end: 20120611

REACTIONS (9)
  - CHILLS [None]
  - NASOPHARYNGITIS [None]
  - LOSS OF CONSCIOUSNESS [None]
  - APPLICATION SITE DERMATITIS [None]
  - FEELING ABNORMAL [None]
  - CONTUSION [None]
  - CHOKING SENSATION [None]
  - DRUG INEFFECTIVE [None]
  - HALLUCINATION [None]
